FAERS Safety Report 16543413 (Version 1)
Quarter: 2019Q3

REPORT INFORMATION
  Report Type: Spontaneous
  Country: DE (occurrence: DE)
  Receive Date: 20190709
  Receipt Date: 20190709
  Transmission Date: 20191004
  Serious: Yes (Hospitalization)
  Sender: FDA-Public Use
  Company Number: DE-TEVA-2019-DE-1074215

PATIENT
  Age: 86 Year
  Sex: Female

DRUGS (15)
  1. SIMVASTATIN. [Concomitant]
     Active Substance: SIMVASTATIN
     Dosage: 20 MG, 0-0-1-0
  2. OMEPRAZOL [Concomitant]
     Active Substance: OMEPRAZOLE
     Dosage: 20 MG, 1-0-1-0
  3. CALCIUM [Concomitant]
     Active Substance: CALCIUM
     Dosage: 1-0-0-0
  4. FOSTER [Concomitant]
     Active Substance: BECLOMETHASONE\FORMOTEROL
     Dosage: 1-0-1-0
  5. PREDNISOLON [Suspect]
     Active Substance: PREDNISOLONE
     Dosage: NK MG, NK
  6. FOLSAEURE [Concomitant]
     Active Substance: FOLIC ACID
     Dosage: 5 MG, 1-0-0-0
  7. VINCRISTIN [Suspect]
     Active Substance: VINCRISTINE
     Dosage: NK MG, NK
  8. CYCLOPHOSPHAMID [Suspect]
     Active Substance: CYCLOPHOSPHAMIDE
     Dosage: NK MG, NK
  9. REKAWAN [Concomitant]
     Active Substance: POTASSIUM CHLORIDE
     Dosage: NK MG, 1-0-0-0
  10. LOSARTAN. [Concomitant]
     Active Substance: LOSARTAN
     Dosage: 100 MG, 0.5-0-0-0
  11. SALBUTAMOL [Concomitant]
     Active Substance: ALBUTEROL
  12. TORASEMID [Concomitant]
     Active Substance: TORSEMIDE
     Dosage: 10 MG, 1-0-0-0
  13. ALLOPURINOL. [Concomitant]
     Active Substance: ALLOPURINOL
     Dosage: 300 MG, 1-0-0-0
  14. DOXORUBICIN [Suspect]
     Active Substance: DOXORUBICIN
     Dosage: NK MG, NK
  15. DEKRISTOL 20000I.E. [Concomitant]
     Dosage: 20000 IE / WOCHE, 1-0-0-0

REACTIONS (1)
  - Anaemia [Unknown]

NARRATIVE: CASE EVENT DATE: 20160628
